FAERS Safety Report 12168479 (Version 3)
Quarter: 2016Q1

REPORT INFORMATION
  Report Type: Report from Study
  Country: JP (occurrence: JP)
  Receive Date: 20160310
  Receipt Date: 20160314
  Transmission Date: 20160526
  Serious: Yes (Hospitalization)
  Sender: FDA-Public Use
  Company Number: JP-AMGEN-JPNNI2016029792

PATIENT
  Age: 59 Year
  Sex: Male

DRUGS (1)
  1. NESP [Suspect]
     Active Substance: DARBEPOETIN ALFA
     Indication: PRODUCT USED FOR UNKNOWN INDICATION
     Dosage: UNK
     Route: 065
     Dates: start: 20150413, end: 20150713

REACTIONS (2)
  - Azotaemia [Recovering/Resolving]
  - End stage renal disease [Recovering/Resolving]

NARRATIVE: CASE EVENT DATE: 20150623
